FAERS Safety Report 8213565-9 (Version None)
Quarter: 2012Q1

REPORT INFORMATION
  Report Type: 
  Country: None (occurrence: None)
  Receive Date: 20120315
  Receipt Date: 20120106
  Transmission Date: 20120608
  Serious: Yes (Hospitalization)
  Sender: FDA-Public Use
  Company Number: PHHY2011CN22718

PATIENT
  Sex: Male
  Weight: 73 kg

DRUGS (1)
  1. IMATINIB MESYLATE [Suspect]
     Dosage: 400 MG, DAILY
     Route: 048
     Dates: start: 20080111

REACTIONS (2)
  - MALIGNANT URINARY TRACT NEOPLASM [None]
  - NEOPLASM MALIGNANT [None]
